FAERS Safety Report 8960422 (Version 1)
Quarter: 2012Q4

REPORT INFORMATION
  Report Type: 
  Country: US (occurrence: US)
  Receive Date: 20121211
  Receipt Date: 20121211
  Transmission Date: 20130627
  Serious: No
  Sender: FDA-Public Use
  Company Number: US-009507513-1212USA000844

PATIENT
  Sex: Female

DRUGS (2)
  1. COSOPT [Suspect]
     Dosage: 1 drop twice daily
  2. COSOPT [Suspect]

REACTIONS (4)
  - Eye injury [Unknown]
  - Eye irritation [Unknown]
  - Eye swelling [Unknown]
  - Product container issue [Unknown]
